FAERS Safety Report 10022711 (Version 3)
Quarter: 2014Q2

REPORT INFORMATION
  Report Type: Spontaneous
  Country: US (occurrence: US)
  Receive Date: 20140319
  Receipt Date: 20140509
  Transmission Date: 20141212
  Serious: No
  Sender: FDA-Public Use
  Company Number: US-PFIZER INC-2014074918

PATIENT
  Age: 70 Year
  Sex: Male
  Weight: 79.37 kg

DRUGS (1)
  1. ADVIL PM [Suspect]
     Indication: SLEEP DISORDER
     Dosage: UNK, AS NEEDED (3-4 TIMES A WEEK)
     Route: 048

REACTIONS (4)
  - Poor quality drug administered [Unknown]
  - Drug ineffective [Unknown]
  - Product colour issue [Unknown]
  - Product physical issue [Unknown]
